FAERS Safety Report 23602814 (Version 1)
Quarter: 2024Q1

REPORT INFORMATION
  Report Type: Spontaneous
  Country: MX (occurrence: MX)
  Receive Date: 20240306
  Receipt Date: 20240306
  Transmission Date: 20240410
  Serious: Yes (Hospitalization, Other)
  Sender: FDA-Public Use
  Company Number: MX-LUNDBECK-DKLU3075031

PATIENT
  Age: 60 Year
  Sex: Female
  Weight: 65 kg

DRUGS (1)
  1. CLOBAZAM [Suspect]
     Active Substance: CLOBAZAM
     Indication: Partial seizures
     Route: 048
     Dates: start: 2021

REACTIONS (3)
  - Seizure [Unknown]
  - Jaw fracture [Unknown]
  - Fall [Unknown]

NARRATIVE: CASE EVENT DATE: 20240226
